FAERS Safety Report 5919303-4 (Version None)
Quarter: 2008Q4

REPORT INFORMATION
  Report Type: 
  Country: None (occurrence: None)
  Receive Date: 20081015
  Receipt Date: 20081006
  Transmission Date: 20090506
  Serious: Yes (Hospitalization, Other)
  Sender: FDA-Public Use
  Company Number: PHHY2008FR24067

PATIENT
  Sex: Male

DRUGS (7)
  1. TEGRETOL [Suspect]
     Indication: HERPES ZOSTER
     Dosage: 600 MG, QD
     Route: 048
     Dates: start: 20080828, end: 20080905
  2. DEXTROPROPOXYPHENE [Interacting]
     Indication: HERPES ZOSTER
  3. DOGMATIL [Concomitant]
  4. KARDEGIC [Concomitant]
  5. MOPRAL [Concomitant]
  6. CRESTOR [Concomitant]
  7. PROZAC [Concomitant]

REACTIONS (10)
  - ATRIAL SEPTAL DEFECT [None]
  - CARDIAC ANEURYSM [None]
  - CEREBRAL INFARCTION [None]
  - DIZZINESS [None]
  - DRUG INTERACTION [None]
  - DRUG LEVEL ABOVE THERAPEUTIC [None]
  - DYSARTHRIA [None]
  - HERPES ZOSTER INFECTION NEUROLOGICAL [None]
  - HYPOMETABOLISM [None]
  - OVERDOSE [None]
